FAERS Safety Report 25895118 (Version 1)
Quarter: 2025Q4

REPORT INFORMATION
  Report Type: Spontaneous
  Country: US (occurrence: US)
  Receive Date: 20251008
  Receipt Date: 20251008
  Transmission Date: 20260117
  Serious: Yes (Life-Threatening)
  Sender: MACLEODS
  Company Number: US-MACLEODS PHARMA-MAC2025055694

PATIENT

DRUGS (9)
  1. DONEPEZIL [Suspect]
     Active Substance: DONEPEZIL
     Indication: Product used for unknown indication
     Dosage: FOR 5 MONTHS
     Route: 065
  2. NEOSTIGMINE [Suspect]
     Active Substance: NEOSTIGMINE
     Indication: General anaesthesia
     Dosage: NEOSTIGMINE (GENSIA, IRVINE, CA) (0.065 MG/KG)
     Route: 042
  3. NEOSTIGMINE [Suspect]
     Active Substance: NEOSTIGMINE
     Dosage: ADDITIONAL 1 MG OF NEOSTIGMINE AGAIN ADMINISTERED
     Route: 042
  4. NEOSTIGMINE [Suspect]
     Active Substance: NEOSTIGMINE
     Route: 065
  5. SUCCINYLCHOLINE [Suspect]
     Active Substance: SUCCINYLCHOLINE
     Indication: General anaesthesia
     Route: 065
  6. NIFEDIPINE [Concomitant]
     Active Substance: NIFEDIPINE
     Indication: Product used for unknown indication
     Route: 065
  7. D-tubocurarine/fentanyl/thiopental [Concomitant]
     Indication: Product used for unknown indication
     Dosage: 3 MG OF D-TUBOCURARINE, 100 UG OF FENTANYL AND 300 MG OF THIOPENTAL
     Route: 065
  8. ISOFLURANE [Concomitant]
     Active Substance: ISOFLURANE
     Indication: Product used for unknown indication
     Route: 065
  9. PANCURONIUM [Concomitant]
     Active Substance: PANCURONIUM
     Route: 065

REACTIONS (8)
  - Unresponsive to stimuli [Recovering/Resolving]
  - Neuromuscular block prolonged [Recovering/Resolving]
  - Apnoea [Recovering/Resolving]
  - Blood cholinesterase decreased [Recovering/Resolving]
  - Dyspnoea [Recovering/Resolving]
  - Hypertension [Recovering/Resolving]
  - Tachycardia [Recovering/Resolving]
  - Drug interaction [Unknown]
